FAERS Safety Report 16420015 (Version 1)
Quarter: 2019Q2

REPORT INFORMATION
  Report Type: Spontaneous
  Country: US (occurrence: US)
  Receive Date: 20190504
  Receipt Date: 20190504
  Transmission Date: 20190711
  Serious: Yes (Hospitalization)
  Sender: FDA-Public Use
  Company Number: None

PATIENT
  Age: 42 Year
  Sex: Female
  Weight: 117 kg

DRUGS (3)
  1. METHOTREXATE. [Suspect]
     Active Substance: METHOTREXATE
     Dates: end: 20190327
  2. ETOPOSIDE (VP-16) [Suspect]
     Active Substance: ETOPOSIDE
     Dates: end: 20190329
  3. CYTARABINE. [Suspect]
     Active Substance: CYTARABINE
     Dates: end: 20190329

REACTIONS (5)
  - Cough [None]
  - White blood cell count decreased [None]
  - Pyrexia [None]
  - Night sweats [None]
  - Neutropenia [None]

NARRATIVE: CASE EVENT DATE: 20190411
